FAERS Safety Report 16182026 (Version 1)
Quarter: 2019Q2

REPORT INFORMATION
  Report Type: Report from Study
  Country: None (occurrence: BE)
  Receive Date: 20190411
  Receipt Date: 20190411
  Transmission Date: 20190711
  Serious: Yes (Hospitalization)
  Sender: FDA-Public Use
  Company Number: BE-ABBVIE-19S-013-2738573-00

PATIENT
  Sex: Female

DRUGS (15)
  1. MYSOLINE [Concomitant]
     Active Substance: PRIMIDONE
     Indication: PRODUCT USED FOR UNKNOWN INDICATION
  2. DUODOPA [Suspect]
     Active Substance: CARBIDOPA\LEVODOPA
     Dosage: DOSES CONTINUOUSLY MONITORED AND ADAPTED
     Route: 050
     Dates: start: 20180608, end: 20190219
  3. LYRICA [Concomitant]
     Active Substance: PREGABALIN
     Indication: PRODUCT USED FOR UNKNOWN INDICATION
  4. MIRAPEXIN [Concomitant]
     Active Substance: PRAMIPEXOLE
     Indication: PRODUCT USED FOR UNKNOWN INDICATION
  5. DUODOPA [Suspect]
     Active Substance: CARBIDOPA\LEVODOPA
     Indication: PARKINSON^S DISEASE
     Dosage: MD=5.5ML??CD=2.9ML/HR DURING 16HRS ??ED=1ML
     Route: 050
     Dates: start: 20180604, end: 20180608
  6. DUODOPA [Suspect]
     Active Substance: CARBIDOPA\LEVODOPA
     Dosage: MD=3ML??CD=2.5ML/HR DURING 16HRS ??ED=1.5ML
     Route: 050
     Dates: start: 20190408
  7. REDOMEX [Concomitant]
     Active Substance: AMITRIPTYLINE HYDROCHLORIDE
     Indication: PRODUCT USED FOR UNKNOWN INDICATION
  8. TRAMADOL. [Concomitant]
     Active Substance: TRAMADOL
     Indication: PRODUCT USED FOR UNKNOWN INDICATION
  9. LORMETAZEPAM [Concomitant]
     Active Substance: LORMETAZEPAM
     Indication: PRODUCT USED FOR UNKNOWN INDICATION
  10. DAFALGAN [Concomitant]
     Active Substance: ACETAMINOPHEN
     Indication: PRODUCT USED FOR UNKNOWN INDICATION
  11. PROLOPA DISP. [Concomitant]
     Dosage: 100MG/25MG;RESCUE MEDICATION: UNKNOWN DOSE,6 TIMES A DAY+ 0.5 TABLET, 2 TIMES A DAY
  12. DUODOPA [Suspect]
     Active Substance: CARBIDOPA\LEVODOPA
     Dosage: MD=3ML??CD=2.8ML/HR DURING 16HRS ??ED=1.5ML
     Route: 050
     Dates: start: 20190219, end: 20190408
  13. DIAZEPAM. [Concomitant]
     Active Substance: DIAZEPAM
     Indication: PRODUCT USED FOR UNKNOWN INDICATION
  14. PROLOPA DISP. [Concomitant]
     Indication: PARKINSON^S DISEASE
     Dosage: FORM STRENGTH100MG/25MG;UNIT DOSE:UNKNOWN DOSE, 6 TIMES A DAY + 0.5 TABLET, 2 TIMES A DAY
     Route: 048
  15. PROLOPA DISP. [Concomitant]
     Indication: PRODUCT USED FOR UNKNOWN INDICATION

REACTIONS (2)
  - Hip arthroplasty [Unknown]
  - Dyskinesia [Unknown]
